FAERS Safety Report 5134060-X (Version None)
Quarter: 2006Q4

REPORT INFORMATION
  Report Type: 
  Country: None (occurrence: None)
  Receive Date: 20061019
  Receipt Date: 20061005
  Transmission Date: 20070319
  Serious: No
  Sender: FDA-Public Use
  Company Number: DE-GUERBET-20060039

PATIENT
  Age: 47 Year
  Sex: Female

DRUGS (1)
  1. DOTAREM: 05GD042A / MEGLUMINE GADOTERATE [Suspect]
     Indication: NUCLEAR MAGNETIC RESONANCE IMAGING
     Dosage: 20, ML MILLILITRE(S), 1, TOTAL INTRAVENOUS (NOT OTHERWISE SPECIFIED)
     Dates: start: 20060920, end: 20060920

REACTIONS (6)
  - ERYTHEMA [None]
  - HYPOTONIA [None]
  - PROCEDURAL COMPLICATION [None]
  - PRURITUS [None]
  - RASH [None]
  - URTICARIA [None]
